FAERS Safety Report 6229292-3 (Version None)
Quarter: 2009Q2

REPORT INFORMATION
  Report Type: 
  Country: None (occurrence: None)
  Receive Date: 20090615
  Receipt Date: 20090512
  Transmission Date: 20091009
  Serious: No
  Sender: FDA-Public Use
  Company Number: US-BAYER-200921198NA

PATIENT
  Age: 67 Year
  Sex: Male

DRUGS (5)
  1. ULTRAVIST 240 [Suspect]
     Indication: COMPUTERISED TOMOGRAM ABDOMEN
     Dosage: TOTAL DAILY DOSE: 200 ML
     Route: 042
     Dates: start: 20090512, end: 20090512
  2. BACTRIM [Concomitant]
  3. NEXIUM [Concomitant]
  4. FURASE [Concomitant]
     Dosage: AS USED: 10 MG
     Route: 042
  5. LIPITOR [Concomitant]

REACTIONS (2)
  - FLANK PAIN [None]
  - HEADACHE [None]
